FAERS Safety Report 24408146 (Version 1)
Quarter: 2024Q4

REPORT INFORMATION
  Report Type: Spontaneous
  Country: US (occurrence: US)
  Receive Date: 20241007
  Receipt Date: 20241007
  Transmission Date: 20250114
  Serious: No
  Sender: BRAINTREE
  Company Number: US-BRAINTREE LABORATORIES, INC.-2024BTE00559

PATIENT
  Age: 57 Year
  Sex: Male
  Weight: 70.295 kg

DRUGS (4)
  1. SUFLAVE [Suspect]
     Active Substance: MAGNESIUM SULFATE ANHYDROUS\POLYETHYLENE GLYCOL 3350\POTASSIUM CHLORIDE\SODIUM CHLORIDE\SODIUM SULFA
     Indication: Colonoscopy
     Dosage: 2 X 1 BOTTLE, 1X
     Route: 048
     Dates: start: 20240820, end: 20240821
  2. PROPOFOL [Suspect]
     Active Substance: PROPOFOL
     Dosage: UNK
  3. LEVOTHYROXINE [Concomitant]
     Active Substance: LEVOTHYROXINE
  4. LIOTHYRONINE [Concomitant]
     Active Substance: LIOTHYRONINE

REACTIONS (9)
  - Chills [Recovered/Resolved]
  - Influenza like illness [Recovered/Resolved]
  - Gait disturbance [Recovered/Resolved]
  - Diplopia [Recovering/Resolving]
  - Photophobia [Recovering/Resolving]
  - Hypersomnia [Recovered/Resolved]
  - Vision blurred [Recovering/Resolving]
  - Lymphadenopathy [Recovering/Resolving]
  - Lymph node pain [Recovering/Resolving]

NARRATIVE: CASE EVENT DATE: 20240801
